FAERS Safety Report 13448422 (Version 6)
Quarter: 2017Q4

REPORT INFORMATION
  Report Type: Spontaneous
  Country: US (occurrence: US)
  Receive Date: 20170417
  Receipt Date: 20171109
  Transmission Date: 20180320
  Serious: Yes (Death, Hospitalization)
  Sender: FDA-Public Use
  Company Number: US-ACTELION-A-NJ2017-152573

PATIENT
  Age: 63 Year
  Sex: Female
  Weight: 61.68 kg

DRUGS (3)
  1. UPTRAVI [Suspect]
     Active Substance: SELEXIPAG
     Dosage: 400 MCG, BID
     Route: 048
  2. UPTRAVI [Suspect]
     Active Substance: SELEXIPAG
     Dosage: 200 MCG, BID
     Route: 048
  3. UPTRAVI [Suspect]
     Active Substance: SELEXIPAG
     Indication: PULMONARY ARTERIAL HYPERTENSION
     Dosage: 600 MCG, BID
     Route: 048

REACTIONS (6)
  - Incontinence [Unknown]
  - Weight decreased [Unknown]
  - Disorientation [Unknown]
  - Transplant rejection [Fatal]
  - Renal failure [Fatal]
  - Pollakiuria [Unknown]

NARRATIVE: CASE EVENT DATE: 201703
